FAERS Safety Report 9119196 (Version 2)
Quarter: 2013Q1

REPORT INFORMATION
  Report Type: Spontaneous
  Country: CA (occurrence: CA)
  Receive Date: 20130207
  Receipt Date: 20130307
  Transmission Date: 20140127
  Serious: Yes (Other)
  Sender: FDA-Public Use
  Company Number: CA-ASTRAZENECA-2013SE06631

PATIENT
  Sex: Female

DRUGS (1)
  1. SYMBICORT TURBUHALER [Suspect]
     Indication: ASTHMA
     Dosage: 200 MCG/6 MCG, 400 MCG, DAILY 2 DOSES
     Route: 055
     Dates: start: 2003

REACTIONS (2)
  - Asthma [Recovered/Resolved]
  - Drug ineffective [Unknown]
